FAERS Safety Report 7543529-X (Version None)
Quarter: 2011Q2

REPORT INFORMATION
  Report Type: 
  Country: None (occurrence: None)
  Receive Date: 20110613
  Receipt Date: 20010912
  Transmission Date: 20111010
  Serious: Yes (Hospitalization)
  Sender: FDA-Public Use
  Company Number: PHBS2001JP06561

PATIENT
  Sex: Male
  Weight: 61 kg

DRUGS (4)
  1. LOCHOLEST [Suspect]
     Indication: HYPERCHOLESTEROLAEMIA
     Dosage: 20 MG/DAY
     Route: 048
     Dates: start: 20000925
  2. LANIRAPID [Concomitant]
     Dates: start: 20010215, end: 20010511
  3. SIMVASTATIN [Concomitant]
     Dates: start: 20010511
  4. BUFFERIN [Concomitant]
     Dosage: 81 MG/DAY
     Dates: start: 20010215, end: 20010511

REACTIONS (3)
  - MITRAL VALVE INCOMPETENCE [None]
  - PALPITATIONS [None]
  - CARDIAC FAILURE [None]
